FAERS Safety Report 6655837-5 (Version None)
Quarter: 2010Q1

REPORT INFORMATION
  Report Type: 
  Country: None (occurrence: None)
  Receive Date: 20100329
  Receipt Date: 20100315
  Transmission Date: 20100710
  Serious: Yes (Hospitalization)
  Sender: FDA-Public Use
  Company Number: SK-ABBOTT-10P-260-0622669-00

PATIENT
  Sex: Female
  Weight: 66 kg

DRUGS (1)
  1. HUMIRA [Suspect]
     Indication: CROHN'S DISEASE
     Route: 058
     Dates: start: 20081205, end: 20091216

REACTIONS (4)
  - DERMATITIS EXFOLIATIVE [None]
  - HAEMOLYTIC ANAEMIA [None]
  - HEPATIC FAILURE [None]
  - POST PROCEDURAL SEPSIS [None]
